FAERS Safety Report 7554607-3 (Version None)
Quarter: 2011Q2

REPORT INFORMATION
  Report Type: 
  Country: None (occurrence: None)
  Receive Date: 20110617
  Receipt Date: 20110606
  Transmission Date: 20111010
  Serious: Yes (Hospitalization)
  Sender: FDA-Public Use
  Company Number: DE-ROCHE-782725

PATIENT
  Sex: Female
  Weight: 67 kg

DRUGS (2)
  1. DIGIMERCK [Concomitant]
     Dosage: FREQUENCY 1-0-0
     Route: 048
  2. CAPECITABINE [Suspect]
     Route: 048
     Dates: start: 20101206, end: 20101201

REACTIONS (2)
  - CORONARY ARTERY DISEASE [None]
  - VENTRICULAR FIBRILLATION [None]
